FAERS Safety Report 7118790-6 (Version None)
Quarter: 2010Q4

REPORT INFORMATION
  Report Type: 
  Country: None (occurrence: None)
  Receive Date: 20101123
  Receipt Date: 20100929
  Transmission Date: 20110411
  Serious: No
  Sender: FDA-Public Use
  Company Number: US-KINGPHARMUSA00001-K201001217

PATIENT
  Sex: Female
  Weight: 51.247 kg

DRUGS (2)
  1. FLECTOR [Suspect]
     Indication: INFLAMMATION
     Dosage: 1 PATCH, PRN
     Route: 061
     Dates: start: 20100925
  2. SYNTHROID [Concomitant]
     Indication: HYPOTHYROIDISM
     Dosage: 150 MCG, QD
     Route: 048

REACTIONS (1)
  - NAUSEA [None]
